FAERS Safety Report 7016600-9 (Version None)
Quarter: 2010Q3

REPORT INFORMATION
  Report Type: 
  Country: None (occurrence: None)
  Receive Date: 20100927
  Receipt Date: 20100923
  Transmission Date: 20110219
  Serious: Yes (Hospitalization)
  Sender: FDA-Public Use
  Company Number: A0883321A

PATIENT
  Age: 44 Year
  Sex: Female

DRUGS (1)
  1. AVANDIA [Suspect]
     Route: 065
     Dates: start: 19990101, end: 20030101

REACTIONS (1)
  - MYOCARDIAL INFARCTION [None]
